FAERS Safety Report 4399504-X (Version None)
Quarter: 2004Q3

REPORT INFORMATION
  Report Type: 
  Country: None (occurrence: None)
  Receive Date: 20040716
  Receipt Date: 20040629
  Transmission Date: 20050211
  Serious: Yes (Hospitalization)
  Sender: FDA-Public Use
  Company Number: US-BRISTOL-MYERS SQUIBB COMPANY-12627881

PATIENT
  Age: 61 Year
  Sex: Female
  Weight: 141 kg

DRUGS (3)
  1. GLUCOPHAGE XR [Suspect]
     Indication: DIABETES MELLITUS
     Route: 048
     Dates: start: 20040305, end: 20040612
  2. BLOOD PRESSURE MEDICATION [Concomitant]
  3. INHALERS [Concomitant]
     Indication: ASTHMA

REACTIONS (2)
  - ABDOMINAL PAIN [None]
  - CYSTITIS [None]
